FAERS Safety Report 9232889 (Version 1)
Quarter: 2013Q2

REPORT INFORMATION
  Report Type: Spontaneous
  Country: US (occurrence: None)
  Receive Date: 20130415
  Receipt Date: 20130415
  Transmission Date: 20140414
  Serious: Yes (Hospitalization)
  Sender: FDA-Public Use
  Company Number: None

PATIENT
  Age: 70 Year
  Sex: Female
  Weight: 66.36 kg

DRUGS (4)
  1. DIOVAN [Suspect]
     Indication: BLOOD PRESSURE
     Dosage: 160MG DAILY PO
     Route: 048
  2. LAMOTRIGINE [Suspect]
     Dosage: 100MG DAILY PO
     Route: 048
  3. ESCITALOPRAM [Suspect]
     Indication: DEPRESSION
     Dosage: 7.5MG DAILY PO
     Route: 048
  4. BUPROPION [Suspect]
     Indication: DEPRESSION
     Dosage: 50MG DAILY PO
     Route: 048

REACTIONS (3)
  - Drug interaction [None]
  - Food interaction [None]
  - Visual impairment [None]
